FAERS Safety Report 6968562-8 (Version None)
Quarter: 2010Q3

REPORT INFORMATION
  Report Type: 
  Country: None (occurrence: None)
  Receive Date: 20100907
  Receipt Date: 20100901
  Transmission Date: 20110219
  Serious: Yes (Death)
  Sender: FDA-Public Use
  Company Number: IT-SANOFI-AVENTIS-2010SA052332

PATIENT
  Age: 72 Year
  Sex: Female

DRUGS (6)
  1. OXALIPLATIN [Suspect]
     Route: 042
  2. OXALIPLATIN [Suspect]
     Route: 042
  3. CAPECITABINE [Suspect]
     Route: 048
  4. CAPECITABINE [Suspect]
     Route: 048
  5. CORTICOSTEROIDS [Concomitant]
     Indication: PREMEDICATION
  6. ANTIEMETICS AND ANTINAUSEANTS [Concomitant]
     Indication: PREMEDICATION

REACTIONS (1)
  - MYOCARDIAL INFARCTION [None]
